FAERS Safety Report 24264457 (Version 1)
Quarter: 2024Q3

REPORT INFORMATION
  Report Type: Spontaneous
  Country: US (occurrence: None)
  Receive Date: 20240828
  Receipt Date: 20240828
  Transmission Date: 20241017
  Serious: No
  Sender: Public
  Company Number: None

PATIENT
  Age: 35 Year
  Sex: Female
  Weight: 83.25 kg

DRUGS (1)
  1. MONISTAT 1 COMBINATION PACK [Suspect]
     Active Substance: MICONAZOLE NITRATE
     Dates: start: 20240826, end: 20240826

REACTIONS (5)
  - Application site pruritus [None]
  - Application site pain [None]
  - Discomfort [None]
  - Fungal infection [None]
  - Condition aggravated [None]

NARRATIVE: CASE EVENT DATE: 20240826
